FAERS Safety Report 19478046 (Version 2)
Quarter: 2021Q3

REPORT INFORMATION
  Report Type: Spontaneous
  Country: US (occurrence: US)
  Receive Date: 20210630
  Receipt Date: 20210709
  Transmission Date: 20211014
  Serious: Yes (Other)
  Sender: FDA-Public Use
  Company Number: US-PFIZER INC-2021754155

PATIENT
  Age: 64 Year
  Sex: Female

DRUGS (1)
  1. EUCRISA [Suspect]
     Active Substance: CRISABOROLE
     Dosage: 60 G

REACTIONS (5)
  - Hip fracture [Unknown]
  - Skin disorder [Unknown]
  - Accident at work [Unknown]
  - Peripheral swelling [Unknown]
  - Swelling [Unknown]
